FAERS Safety Report 10743980 (Version 1)
Quarter: 2015Q1

REPORT INFORMATION
  Report Type: Report from Study
  Country: US (occurrence: None)
  Receive Date: 20150126
  Receipt Date: 20150126
  Transmission Date: 20150721
  Serious: Yes (Death, Hospitalization)
  Sender: FDA-Public Use
  Company Number: US-001552

PATIENT
  Sex: Female

DRUGS (2)
  1. SOLUTIONS FOR PARENTERAL NUTRITION [Concomitant]
     Active Substance: AMINO ACIDS\DEXTROSE\ELECTROLYTES NOS
  2. GATTEX [Suspect]
     Active Substance: TEDUGLUTIDE\WATER
     Indication: SHORT-BOWEL SYNDROME
     Route: 058
     Dates: start: 201307

REACTIONS (9)
  - Renal failure [None]
  - Feeling abnormal [None]
  - Neuralgia [None]
  - General physical health deterioration [None]
  - Blood glucose abnormal [None]
  - Inappropriate schedule of drug administration [None]
  - Hepatic failure [None]
  - Abasia [None]
  - Blood pressure decreased [None]

NARRATIVE: CASE EVENT DATE: 2014
